FAERS Safety Report 15839399 (Version 2)
Quarter: 2019Q1

REPORT INFORMATION
  Report Type: Report from Study
  Country: IT (occurrence: IT)
  Receive Date: 20190117
  Receipt Date: 20190125
  Transmission Date: 20190417
  Serious: Yes (Other)
  Sender: FDA-Public Use
  Company Number: IT-BRISTOL-MYERS SQUIBB COMPANY-BMS-2019-002113

PATIENT
  Age: 72 Year
  Sex: Male
  Weight: 52.7 kg

DRUGS (3)
  1. RELATLIMAB [Suspect]
     Active Substance: RELATLIMAB
     Indication: BLADDER CANCER
     Dosage: 160 MG, UNK
     Route: 042
     Dates: start: 20180626, end: 20181212
  2. DELTACORTENE [Concomitant]
     Active Substance: PREDNISONE
     Indication: PRODUCT USED FOR UNKNOWN INDICATION
     Dosage: 75 MG, UNK
     Route: 065
     Dates: start: 20190110
  3. NIVOLUMAB [Suspect]
     Active Substance: NIVOLUMAB
     Indication: BLADDER CANCER
     Dosage: 480 MG, UNK
     Route: 042
     Dates: start: 20180626, end: 20181212

REACTIONS (1)
  - Lipase increased [Not Recovered/Not Resolved]

NARRATIVE: CASE EVENT DATE: 20190109
